FAERS Safety Report 6070845-3 (Version None)
Quarter: 2009Q1

REPORT INFORMATION
  Report Type: 
  Country: None (occurrence: None)
  Receive Date: 20090209
  Receipt Date: 20080917
  Transmission Date: 20090719
  Serious: No
  Sender: FDA-Public Use
  Company Number: A0747967A

PATIENT
  Age: 56 Year
  Sex: Female

DRUGS (5)
  1. PAROXETINE HCL [Suspect]
     Indication: DEPRESSION
     Dosage: 20G PER DAY
     Route: 048
     Dates: start: 20080101, end: 20080915
  2. WELLBUTRIN SR [Concomitant]
     Route: 048
  3. LISINOPRIL [Concomitant]
  4. ATENOLOL [Concomitant]
  5. FOSAMAX [Concomitant]

REACTIONS (3)
  - IRRITABILITY [None]
  - PANIC ATTACK [None]
  - WEIGHT INCREASED [None]
